FAERS Safety Report 9825173 (Version 1)
Quarter: 2013Q4

REPORT INFORMATION
  Report Type: Spontaneous
  Country: US (occurrence: None)
  Receive Date: 20131223
  Receipt Date: 20131223
  Transmission Date: 20140711
  Serious: Yes (Other)
  Sender: FDA-Public Use
  Company Number: 220171LEO

PATIENT
  Sex: Male

DRUGS (7)
  1. PICATO GEL [Suspect]
     Indication: ACTINIC KERATOSIS
     Dates: start: 20130115
  2. FLECAINIDE (FLECAINIDE) [Concomitant]
  3. ATENOLOL (ATENOLOL) [Concomitant]
  4. SIMVASTATIN (SIMVASTATIN) [Concomitant]
  5. LISINOPRIL (HCTZ) (PRINZIDE) [Concomitant]
  6. ASA (ACETYLSALICYLIC ACID) [Concomitant]
  7. FISH OIL (FISH OIL) [Concomitant]

REACTIONS (2)
  - Application site pain [None]
  - Drug administered at inappropriate site [None]
